FAERS Safety Report 26177159 (Version 1)
Quarter: 2025Q4

REPORT INFORMATION
  Report Type: Report from Study
  Country: CA (occurrence: CA)
  Receive Date: 20251219
  Receipt Date: 20251219
  Transmission Date: 20260118
  Serious: Yes (Other)
  Sender: Alvotech
  Company Number: CA-JAMP PHARMA CORPORATION-2025-JAM-CA-01520

PATIENT
  Sex: Male

DRUGS (2)
  1. SIMLANDI [Suspect]
     Active Substance: ADALIMUMAB-RYVK
     Indication: Uveitis
     Dosage: 40 MG, EVERY WEEK
     Route: 058
  2. SIMLANDI [Suspect]
     Active Substance: ADALIMUMAB-RYVK
     Indication: Uveitis
     Dosage: 40 MILLIGRAM, EVERY 2 WEEKS
     Route: 058
     Dates: start: 20230913

REACTIONS (3)
  - Uveitis [Not Recovered/Not Resolved]
  - Illness [Unknown]
  - Off label use [Unknown]
